FAERS Safety Report 10744932 (Version 1)
Quarter: 2015Q1

REPORT INFORMATION
  Report Type: Spontaneous
  Country: US (occurrence: None)
  Receive Date: 20150112
  Receipt Date: 20150112
  Transmission Date: 20150721
  Serious: Yes (Death)
  Sender: FDA-Public Use
  Company Number: 1366275

PATIENT
  Age: 73 Year
  Sex: Male
  Weight: 72.8 kg

DRUGS (5)
  1. SOTALOL (SOTALOL) [Concomitant]
     Active Substance: SOTALOL
  2. ACTIVASE [Suspect]
     Active Substance: ALTEPLASE
     Indication: CEREBROVASCULAR ACCIDENT
     Dosage: IV PUSH (NOT OTHERWISE SPECIFIED)
     Route: 042
     Dates: start: 20140104, end: 20140104
  3. DIGOXIN (DIGOXIN) [Concomitant]
     Active Substance: DIGOXIN
  4. ASPIRIN (ASPIRIN) [Concomitant]
     Active Substance: ASPIRIN
  5. LISINOPRIL (LISINOPRIL) [Concomitant]
     Active Substance: LISINOPRIL

REACTIONS (1)
  - Haemorrhage intracranial [None]
